FAERS Safety Report 4760248-3 (Version None)
Quarter: 2005Q3

REPORT INFORMATION
  Report Type: 
  Country: None (occurrence: None)
  Receive Date: 20050902
  Receipt Date: 20040629
  Transmission Date: 20060218
  Serious: Yes (Hospitalization)
  Sender: FDA-Public Use
  Company Number: US-ROCHE-372532

PATIENT
  Age: 48 Year
  Sex: Female
  Weight: 83.6 kg

DRUGS (8)
  1. PEG-INTERFERON ALFA 2A (RO 25-8310) [Suspect]
     Route: 058
     Dates: start: 20040422, end: 20040628
  2. PEG-INTERFERON ALFA 2A (RO 25-8310) [Suspect]
     Route: 058
     Dates: start: 20040709
  3. RIBAVIRIN [Suspect]
     Route: 048
     Dates: start: 20040424, end: 20040627
  4. RIBAVIRIN [Suspect]
     Route: 048
     Dates: start: 20040709
  5. WELLBUTRIN [Concomitant]
     Dates: start: 20031115
  6. KLONOPIN [Concomitant]
     Dates: start: 20030715
  7. ALBUTEROL [Concomitant]
     Dates: start: 19830615
  8. FLONASE [Concomitant]
     Dates: start: 19990615

REACTIONS (3)
  - CELLULITIS [None]
  - NEUTROPENIA [None]
  - TOOTH ABSCESS [None]
